FAERS Safety Report 24225530 (Version 1)
Quarter: 2024Q3

REPORT INFORMATION
  Report Type: Report from Study
  Country: IL (occurrence: IL)
  Receive Date: 20240820
  Receipt Date: 20240820
  Transmission Date: 20241017
  Serious: Yes (Other)
  Sender: EMD SERONO INC
  Company Number: IL-Merck Healthcare KGaA-2024043880

PATIENT
  Age: 31 Year
  Sex: Female

DRUGS (1)
  1. REBIF [Suspect]
     Active Substance: INTERFERON BETA-1A
     Indication: Multiple sclerosis
     Dates: start: 20190206

REACTIONS (1)
  - Colitis [Not Recovered/Not Resolved]
